FAERS Safety Report 4861647-1 (Version None)
Quarter: 2005Q4

REPORT INFORMATION
  Report Type: 
  Country: None (occurrence: None)
  Receive Date: 20051129
  Receipt Date: 20050926
  Transmission Date: 20060501
  Serious: Yes (Other)
  Sender: FDA-Public Use
  Company Number: WAES 0506USA04132

PATIENT
  Age: 44 Year
  Sex: Female
  Weight: 52.1637 kg

DRUGS (4)
  1. VYTORIN [Suspect]
     Indication: BLOOD CHOLESTEROL INCREASED
     Dosage: 10-20 MG/DAILY/PO
     Route: 048
  2. VYTORIN [Suspect]
     Indication: HYPERLIPIDAEMIA
     Dosage: 10-20 MG/DAILY/PO
     Route: 048
  3. CALTRATE [Concomitant]
  4. PREMPRO [Concomitant]

REACTIONS (1)
  - HEADACHE [None]
